FAERS Safety Report 6184755-4 (Version None)
Quarter: 2009Q2

REPORT INFORMATION
  Report Type: 
  Country: None (occurrence: None)
  Receive Date: 20090508
  Receipt Date: 20090501
  Transmission Date: 20091009
  Serious: Yes (Other)
  Sender: FDA-Public Use
  Company Number: PHEH2008US07762

PATIENT
  Sex: Female
  Weight: 74.83 kg

DRUGS (1)
  1. TEGRETOL [Suspect]
     Dosage: UNK

REACTIONS (5)
  - DENTAL CARIES [None]
  - DRY MOUTH [None]
  - PERIODONTITIS [None]
  - RESORPTION BONE INCREASED [None]
  - TOOTH LOSS [None]
